FAERS Safety Report 23367983 (Version 5)
Quarter: 2024Q1

REPORT INFORMATION
  Report Type: Report from Study
  Country: IL (occurrence: IL)
  Receive Date: 20240105
  Receipt Date: 20240124
  Transmission Date: 20240409
  Serious: Yes (Hospitalization, Other)
  Sender: FDA-Public Use
  Company Number: IL-ABBVIE-5570529

PATIENT
  Sex: Male

DRUGS (4)
  1. SKYRIZI [Suspect]
     Active Substance: RISANKIZUMAB-RZAA
     Indication: Psoriasis
     Dosage: LAST ADMIN DATE? 2023
     Route: 058
     Dates: start: 202301
  2. SKYRIZI [Suspect]
     Active Substance: RISANKIZUMAB-RZAA
     Dosage: FORM STRENGTH: 150 MILLIGRAM, FIRST INJECTION FIRST ADMIN DATE AND LAST ADMIN DATE 2024
     Route: 058
     Dates: start: 202401
  3. SKYRIZI [Suspect]
     Active Substance: RISANKIZUMAB-RZAA
     Dosage: FORM STRENGTH: 150 MILLIGRAM, SECOND INJECTION  FIRST ADMIN DATE AND LAST ADMIN DATE 2023
     Route: 058
  4. SKYRIZI [Suspect]
     Active Substance: RISANKIZUMAB-RZAA
     Dosage: FORM STRENGTH: 150 MILLIGRAM, 3RD INJECTION
     Route: 058
     Dates: start: 20240110, end: 20240110

REACTIONS (6)
  - Metastases to lung [Unknown]
  - Metastatic malignant melanoma [Unknown]
  - Psoriasis [Not Recovered/Not Resolved]
  - Device issue [Unknown]
  - Oedema peripheral [Recovering/Resolving]
  - Melanoma recurrent [Unknown]

NARRATIVE: CASE EVENT DATE: 20230101
